FAERS Safety Report 7270373-3 (Version None)
Quarter: 2011Q1

REPORT INFORMATION
  Report Type: 
  Country: None (occurrence: None)
  Receive Date: 20110202
  Receipt Date: 20101212
  Transmission Date: 20110831
  Serious: Yes (Hospitalization)
  Sender: FDA-Public Use
  Company Number: IL-BAYER-2010-001462

PATIENT
  Sex: Female

DRUGS (1)
  1. MIRENA [Suspect]
     Dosage: UNK
     Dates: start: 20100531, end: 20101205

REACTIONS (5)
  - OVARIAN CYST [None]
  - OVARIAN CYST RUPTURED [None]
  - AMENORRHOEA [None]
  - PELVIC INFLAMMATORY DISEASE [None]
  - PAIN [None]
